FAERS Safety Report 17499690 (Version 1)
Quarter: 2020Q1

REPORT INFORMATION
  Report Type: Spontaneous
  Country: SI (occurrence: SI)
  Receive Date: 20200304
  Receipt Date: 20200304
  Transmission Date: 20200409
  Serious: Yes (Death)
  Sender: FDA-Public Use
  Company Number: SI-TAKEDA-2020TUS011029

PATIENT
  Age: 34 Year
  Sex: Female

DRUGS (2)
  1. ALDACTONE [Concomitant]
     Active Substance: SPIRONOLACTONE
     Indication: HIRSUTISM
     Dosage: UNK
     Route: 065
     Dates: start: 201909
  2. BRINTELLIX [Suspect]
     Active Substance: VORTIOXETINE HYDROBROMIDE
     Indication: MAJOR DEPRESSION
     Dosage: 20 MILLIGRAM, QD
     Route: 048
     Dates: start: 201709

REACTIONS (3)
  - Hypertrichosis [Not Recovered/Not Resolved]
  - Completed suicide [Fatal]
  - Acne [Not Recovered/Not Resolved]

NARRATIVE: CASE EVENT DATE: 202001
